FAERS Safety Report 13017714 (Version 3)
Quarter: 2017Q2

REPORT INFORMATION
  Report Type: Spontaneous
  Country: US (occurrence: US)
  Receive Date: 20161212
  Receipt Date: 20170420
  Transmission Date: 20170830
  Serious: No
  Sender: FDA-Public Use
  Company Number: US-PFIZER INC-2016564011

PATIENT
  Age: 51 Year
  Sex: Female

DRUGS (1)
  1. TOFACITINIB [Suspect]
     Active Substance: TOFACITINIB
     Indication: RHEUMATOID ARTHRITIS
     Dosage: 5 MG, UNK

REACTIONS (4)
  - Dizziness [Unknown]
  - Blood cholesterol increased [Unknown]
  - Fungal infection [Unknown]
  - Nausea [Unknown]

NARRATIVE: CASE EVENT DATE: 20161201
